FAERS Safety Report 6214986-6 (Version None)
Quarter: 2009Q2

REPORT INFORMATION
  Report Type: 
  Country: None (occurrence: None)
  Receive Date: 20090604
  Receipt Date: 20080428
  Transmission Date: 20091009
  Serious: No
  Sender: FDA-Public Use
  Company Number: US-ASTRAZENECA-2008UW08590

PATIENT
  Age: 67 Year
  Sex: Female
  Weight: 54.4 kg

DRUGS (9)
  1. PRILOSEC [Suspect]
     Indication: GASTROOESOPHAGEAL REFLUX DISEASE
     Route: 048
     Dates: start: 19780101
  2. PRILOSEC [Suspect]
     Route: 048
     Dates: start: 20080101
  3. SYNTHROID [Concomitant]
  4. FOLIC ACID [Concomitant]
  5. METHOTREXATE [Concomitant]
  6. PLAQUINOL [Concomitant]
  7. HYDROCHLOROTHIAZIDE [Concomitant]
  8. NEURONTIN [Concomitant]
  9. PAIN MEDS [Concomitant]

REACTIONS (1)
  - GASTROOESOPHAGEAL REFLUX DISEASE [None]
